FAERS Safety Report 4667906-X (Version None)
Quarter: 2005Q2

REPORT INFORMATION
  Report Type: 
  Country: None (occurrence: None)
  Receive Date: 20050520
  Receipt Date: 20050513
  Transmission Date: 20051028
  Serious: Yes (Hospitalization)
  Sender: FDA-Public Use
  Company Number: PHBS2005CH06689

PATIENT
  Age: 34 Year
  Sex: Male

DRUGS (7)
  1. LEPONEX [Suspect]
     Indication: SCHIZOPHRENIA
     Dosage: 700 MG/D
     Route: 065
     Dates: start: 20050315
  2. LEPONEX [Suspect]
     Route: 065
  3. SOLIAN [Suspect]
     Indication: SCHIZOPHRENIA
     Dosage: 800 MG/D
     Route: 065
     Dates: start: 20050222
  4. TRANXENE [Suspect]
     Route: 065
     Dates: end: 20050319
  5. NERVIFENE [Concomitant]
     Indication: SLEEP DISORDER
     Dosage: 5 MG/D
     Route: 065
     Dates: start: 20050201, end: 20050330
  6. SORTIS [Concomitant]
     Indication: HYPERLIPIDAEMIA
     Dosage: 20 MG/D
     Route: 065
     Dates: start: 20000101
  7. NORVASC [Concomitant]
     Dosage: 5 MG/D
     Route: 065
     Dates: start: 20050201

REACTIONS (2)
  - DRUG WITHDRAWAL SYNDROME [None]
  - GRAND MAL CONVULSION [None]
